FAERS Safety Report 23746008 (Version 1)
Quarter: 2024Q2

REPORT INFORMATION
  Report Type: Spontaneous
  Country: JP (occurrence: JP)
  Receive Date: 20240416
  Receipt Date: 20240416
  Transmission Date: 20240716
  Serious: Yes (Hospitalization, Other)
  Sender: FDA-Public Use
  Company Number: JP-TAKEDA-2024TUS027334

PATIENT
  Age: 31 Year
  Sex: Male
  Weight: 73 kg

DRUGS (2)
  1. LIALDA [Suspect]
     Active Substance: MESALAMINE
     Indication: Colitis ulcerative
     Dosage: 4800 MILLIGRAM, QD
     Route: 048
     Dates: start: 20240119, end: 20240220
  2. BIO-THREE [Concomitant]
     Active Substance: HERBALS
     Dosage: 2 DOSAGE FORM, Q8HR
     Route: 048
     Dates: start: 20240113, end: 20240220

REACTIONS (1)
  - Pancreatitis acute [Recovering/Resolving]

NARRATIVE: CASE EVENT DATE: 20240220
